FAERS Safety Report 9508008 (Version 1)
Quarter: 2013Q1

REPORT INFORMATION
  Report Type: Spontaneous
  Country: US (occurrence: None)
  Receive Date: 20130305
  Receipt Date: 20130305
  Transmission Date: 20140127
  Serious: Yes (Hospitalization)
  Sender: FDA-Public Use
  Company Number: 163-21880-12051933

PATIENT
  Age: 84 Year
  Sex: Female

DRUGS (2)
  1. REVLIMID [Suspect]
     Indication: PLASMA CELL MYELOMA
     Dosage: 10 MG, QD FOR 21D ON, FOLLOWED BY 7D OFF, PO
     Route: 048
     Dates: start: 20120509, end: 20120514
  2. COUMADIN (WARFARIN SODIUM) (UNKNOWN) [Concomitant]

REACTIONS (2)
  - Platelet count decreased [None]
  - Pruritus [None]
